FAERS Safety Report 23040500 (Version 1)
Quarter: 2023Q4

REPORT INFORMATION
  Report Type: Other
  Country: US (occurrence: US)
  Receive Date: 20231006
  Receipt Date: 20231006
  Transmission Date: 20240110
  Serious: No
  Sender: FDA-Public Use
  Company Number: US-TRAVERE-2023TVT00377

PATIENT
  Age: 6 Year
  Sex: Male

DRUGS (5)
  1. CHOLBAM [Suspect]
     Active Substance: CHOLIC ACID
     Indication: Lipid metabolism disorder
     Route: 048
     Dates: start: 20220108
  2. Multivitamin Childrens [Concomitant]
  3. Melatonin Childrens [Concomitant]
  4. MIRALAX [Concomitant]
     Active Substance: POLYETHYLENE GLYCOL 3350
  5. OMEGA 3,6,9 [Concomitant]

REACTIONS (1)
  - Brain fog [Unknown]
